FAERS Safety Report 6360822-7 (Version None)
Quarter: 2009Q3

REPORT INFORMATION
  Report Type: 
  Country: None (occurrence: None)
  Receive Date: 20090915
  Receipt Date: 20090915
  Transmission Date: 20100115
  Serious: Yes (Hospitalization)
  Sender: FDA-Public Use
  Company Number: None

PATIENT
  Age: 28 Year
  Sex: Female
  Weight: 72.5755 kg

DRUGS (1)
  1. ADDERALL 20 [Suspect]
     Indication: HYPERTENSION
     Dosage: 20 MG BID SL
     Route: 060

REACTIONS (7)
  - DIZZINESS [None]
  - DRUG EXPOSURE DURING PREGNANCY [None]
  - FATIGUE [None]
  - HYPERTENSION [None]
  - PREGNANCY [None]
  - PREMATURE LABOUR [None]
  - PRODUCT QUALITY ISSUE [None]
